FAERS Safety Report 4888394-4 (Version None)
Quarter: 2006Q1

REPORT INFORMATION
  Report Type: 
  Country: None (occurrence: None)
  Receive Date: 20060119
  Receipt Date: 20060119
  Transmission Date: 20060701
  Serious: Yes (Hospitalization)
  Sender: FDA-Public Use
  Company Number: None

PATIENT
  Age: 57 Year
  Sex: Male
  Weight: 68.4932 kg

DRUGS (4)
  1. RITUXAN [Suspect]
     Indication: DIFFUSE LARGE B-CELL LYMPHOMA
     Dosage: 800 MG IV
     Route: 042
     Dates: start: 20050930
  2. CYCLOPHOSPHAMIDE [Suspect]
     Indication: DIFFUSE LARGE B-CELL LYMPHOMA
     Dosage: 150MG IV
     Route: 042
     Dates: start: 20050930
  3. DOXORUBICIN [Suspect]
     Indication: DIFFUSE LARGE B-CELL LYMPHOMA
     Dosage: 100 MG IVP
     Route: 042
     Dates: start: 20050930
  4. VINCRISTINE [Suspect]
     Indication: DIFFUSE LARGE B-CELL LYMPHOMA
     Dosage: 2MG IVP
     Route: 042
     Dates: start: 20050930

REACTIONS (3)
  - BODY TEMPERATURE INCREASED [None]
  - MALAISE [None]
  - NEUTROPENIA [None]
